FAERS Safety Report 18133334 (Version 1)
Quarter: 2020Q3

REPORT INFORMATION
  Report Type: Other
  Country: US (occurrence: US)
  Receive Date: 20200811
  Receipt Date: 20200811
  Transmission Date: 20201103
  Serious: Yes (Hospitalization)
  Sender: FDA-Public Use
  Company Number: US-ROCHE-2654643

PATIENT
  Sex: Female

DRUGS (14)
  1. XOLAIR [Suspect]
     Active Substance: OMALIZUMAB
     Indication: IDIOPATHIC URTICARIA
     Route: 058
  2. XOLAIR [Suspect]
     Active Substance: OMALIZUMAB
     Indication: ASTHMA
  3. XOLAIR [Suspect]
     Active Substance: OMALIZUMAB
  4. PREDNISONE. [Concomitant]
     Active Substance: PREDNISONE
     Dosage: TAKE 4 TABLET BY ORAL ROUTE EVERY 3 DAYS THEN 3 TABLETS DAILY FOR 3 DAYS , THEN 2 TABLET?DAILY FOR 3
     Route: 048
     Dates: start: 20200804, end: 20200806
  5. XOLAIR [Suspect]
     Active Substance: OMALIZUMAB
  6. LEVALBUTEROL. [Concomitant]
     Active Substance: LEVALBUTEROL
     Dosage: INHALE 2 PUFF BY INHALATION ROUTE EVERY 6 HRS
     Route: 045
     Dates: start: 20200804
  7. BENADRYL [Concomitant]
     Active Substance: DIPHENHYDRAMINE HYDROCHLORIDE
     Dosage: 1 TABLET ORAL ROUTE EVERY 4?6 HRS AS NEEDED
     Route: 048
     Dates: start: 20200804
  8. FLOVENT HFA [Concomitant]
     Active Substance: FLUTICASONE PROPIONATE
     Dosage: INHALE 2 PUFF BY INHALATION ROUTE 2 TIMES EVERY DAY
     Route: 045
     Dates: start: 20200804
  9. XOLAIR [Suspect]
     Active Substance: OMALIZUMAB
  10. XOLAIR [Suspect]
     Active Substance: OMALIZUMAB
  11. EPIPEN [Concomitant]
     Active Substance: EPINEPHRINE
     Indication: ANAPHYLACTIC REACTION
     Dosage: INJECT 0.3 MILLILITER BY INTRAMUSCULAR ROUTE ONCE AS NEEDED FOR ANAPHYLAXIS AS NEEDED.
     Route: 030
     Dates: start: 20200804
  12. SINGULAIR [Concomitant]
     Active Substance: MONTELUKAST SODIUM
     Dosage: TAKE 1 TABLET BY ORAL ROUTE EVERY DAY IN THE EVENING
     Route: 048
     Dates: start: 20200804
  13. TIROSINT [Concomitant]
     Active Substance: LEVOTHYROXINE SODIUM
     Dosage: TAKE 1 CAPSULE BY ORAL ROUTE EVERY DAY
     Route: 048
     Dates: start: 20200804
  14. XYZAL [Concomitant]
     Active Substance: LEVOCETIRIZINE DIHYDROCHLORIDE
     Dosage: TAKE 2 TABLET BY ORAL ROUTE 2 TIMES A DAY
     Route: 048
     Dates: start: 20200804

REACTIONS (6)
  - Anaphylactic reaction [Unknown]
  - Chest discomfort [Unknown]
  - Swelling face [Unknown]
  - Lip swelling [Unknown]
  - Pharyngeal swelling [Unknown]
  - Urticaria [Unknown]
